FAERS Safety Report 11106612 (Version 1)
Quarter: 2015Q2

REPORT INFORMATION
  Report Type: Spontaneous
  Country: US (occurrence: US)
  Receive Date: 20150512
  Receipt Date: 20150512
  Transmission Date: 20150821
  Serious: No
  Sender: FDA-Public Use
  Company Number: US-009507513-1504USA023524

PATIENT
  Age: 19 Year
  Sex: Female
  Weight: 54.42 kg

DRUGS (1)
  1. NEXPLANON [Suspect]
     Active Substance: ETONOGESTREL
     Indication: MENSTRUAL DISORDER
     Dosage: 1 ROD, EVERY 3 YEARS, ^LEFT ARM^
     Route: 059
     Dates: start: 20150227

REACTIONS (2)
  - Menometrorrhagia [Unknown]
  - Drug administration error [Unknown]

NARRATIVE: CASE EVENT DATE: 20150227
